FAERS Safety Report 8826113 (Version 1)
Quarter: 2012Q4

REPORT INFORMATION
  Report Type: 
  Country: GB (occurrence: GB)
  Receive Date: 20121005
  Receipt Date: 20121005
  Transmission Date: 20130627
  Serious: Yes (Hospitalization)
  Sender: FDA-Public Use
  Company Number: GB-ROCHE-1140701

PATIENT
  Age: 83 Year
  Sex: Female

DRUGS (3)
  1. AVASTIN [Suspect]
     Indication: THROMBOSIS
     Route: 031
  2. CALCICHEW D3 [Concomitant]
     Route: 048
  3. ISMN [Concomitant]
     Route: 048

REACTIONS (4)
  - Dizziness [Recovering/Resolving]
  - Presyncope [Recovering/Resolving]
  - Pain [Recovering/Resolving]
  - Vomiting [Recovering/Resolving]
